FAERS Safety Report 17053563 (Version 2)
Quarter: 2019Q4

REPORT INFORMATION
  Report Type: Spontaneous
  Country: US (occurrence: US)
  Receive Date: 20191120
  Receipt Date: 20191212
  Transmission Date: 20200122
  Serious: Yes (Death, Hospitalization)
  Sender: FDA-Public Use
  Company Number: US-PFIZER INC-2019503968

PATIENT
  Age: 65 Year
  Sex: Male

DRUGS (1)
  1. SUTENT [Suspect]
     Active Substance: SUNITINIB MALATE
     Indication: RENAL CELL CARCINOMA
     Dosage: 50 MG, CYCLIC [28DAYS OFF X 14 DAYS]
     Route: 048
     Dates: start: 20181003, end: 20190805

REACTIONS (2)
  - Neoplasm progression [Fatal]
  - Abdominal pain [Unknown]

NARRATIVE: CASE EVENT DATE: 20190804
